FAERS Safety Report 7286280-6 (Version None)
Quarter: 2011Q1

REPORT INFORMATION
  Report Type: 
  Country: None (occurrence: None)
  Receive Date: 20110210
  Receipt Date: 20110207
  Transmission Date: 20110831
  Serious: Yes (Death, Hospitalization)
  Sender: FDA-Public Use
  Company Number: PHHY2011CA05664

PATIENT
  Sex: Female

DRUGS (1)
  1. AFINITOR [Suspect]
     Indication: PANCREATIC NEUROENDOCRINE TUMOUR
     Dosage: 10 MG, QD
     Route: 048
     Dates: start: 20110114

REACTIONS (6)
  - NEOPLASM MALIGNANT [None]
  - CYSTITIS [None]
  - MALAISE [None]
  - ASCITES [None]
  - DEATH [None]
  - HYPONATRAEMIA [None]
